FAERS Safety Report 7023085-5 (Version None)
Quarter: 2010Q3

REPORT INFORMATION
  Report Type: 
  Country: None (occurrence: None)
  Receive Date: 20100930
  Receipt Date: 20100920
  Transmission Date: 20110219
  Serious: Yes (Death)
  Sender: FDA-Public Use
  Company Number: US-BAXTER-2010BH022613

PATIENT
  Age: 48 Year
  Sex: Female

DRUGS (3)
  1. DIANEAL [Suspect]
     Indication: PERITONEAL DIALYSIS
     Route: 033
     Dates: start: 20060101, end: 20100818
  2. DIANEAL [Suspect]
     Route: 033
     Dates: start: 20060101, end: 20100818
  3. DIANEAL [Suspect]
     Route: 033
     Dates: start: 20060101, end: 20100818

REACTIONS (5)
  - CARDIOMYOPATHY [None]
  - DRUG INEFFECTIVE [None]
  - HEPATIC FAILURE [None]
  - NO THERAPEUTIC RESPONSE [None]
  - THERAPY CESSATION [None]
